FAERS Safety Report 7469012-8 (Version None)
Quarter: 2011Q2

REPORT INFORMATION
  Report Type: 
  Country: None (occurrence: None)
  Receive Date: 20110429
  Receipt Date: 20110415
  Transmission Date: 20111010
  Serious: Yes (Other)
  Sender: FDA-Public Use
  Company Number: 2011SP017962

PATIENT
  Sex: Male

DRUGS (1)
  1. PHENPROCOUMON (PHENPROCOUMON /00034501/) [Suspect]
     Indication: PREGNANCY

REACTIONS (12)
  - CARDIO-RESPIRATORY ARREST NEONATAL [None]
  - MATERNAL DRUGS AFFECTING FOETUS [None]
  - CEREBRAL HAEMORRHAGE [None]
  - ANAEMIA NEONATAL [None]
  - OEDEMA [None]
  - STILLBIRTH [None]
  - CARDIOMEGALY [None]
  - INDUCED ABORTION FAILED [None]
  - POISONING [None]
  - ASCITES [None]
  - FOETAL DISORDER [None]
  - THROMBOCYTOPENIA NEONATAL [None]
